FAERS Safety Report 25284183 (Version 2)
Quarter: 2025Q4

REPORT INFORMATION
  Report Type: Spontaneous
  Country: US (occurrence: US)
  Receive Date: 20250508
  Receipt Date: 20251002
  Transmission Date: 20260118
  Serious: Yes (Other)
  Sender: MERCK SHARP & DOHME LLC
  Company Number: US-009507513-2283242

PATIENT
  Age: 62 Year
  Sex: Male
  Weight: 88.9 kg

DRUGS (17)
  1. SOTATERCEPT [Suspect]
     Active Substance: SOTATERCEPT
     Indication: Product used for unknown indication
     Dosage: UNK
     Route: 065
  2. SOTATERCEPT [Suspect]
     Active Substance: SOTATERCEPT
  3. SOTATERCEPT [Suspect]
     Active Substance: SOTATERCEPT
  4. SOTATERCEPT [Suspect]
     Active Substance: SOTATERCEPT
  5. REMODULIN [Suspect]
     Active Substance: TREPROSTINIL
     Indication: Pulmonary hypertension
     Dosage: STRENGTH: 10.0 MG/ML, 0.0884 UG/KG CONTINUING
     Route: 041
     Dates: start: 20250213
  6. IMODIUM A-D [Concomitant]
     Active Substance: LOPERAMIDE HYDROCHLORIDE
  7. ACETAMINOPHEN\HYDROCODONE [Concomitant]
     Active Substance: ACETAMINOPHEN\HYDROCODONE
  8. TYLENOL [Concomitant]
     Active Substance: ACETAMINOPHEN
  9. ADEMPAS [Concomitant]
     Active Substance: RIOCIGUAT
  10. KLOR-CON M20 [Concomitant]
     Active Substance: POTASSIUM CHLORIDE
  11. GABAPENTIN [Concomitant]
     Active Substance: GABAPENTIN
  12. CEPHALEXIN [Concomitant]
     Active Substance: CEPHALEXIN
  13. CALCIUM CITRATE [Concomitant]
     Active Substance: CALCIUM CITRATE
  14. BACLOFEN [Concomitant]
     Active Substance: BACLOFEN
  15. SPIRONOLACTONE [Concomitant]
     Active Substance: SPIRONOLACTONE
  16. MINERALS\VITAMINS [Concomitant]
     Active Substance: MINERALS\VITAMINS
  17. MINERALS\VITAMINS [Concomitant]
     Active Substance: MINERALS\VITAMINS

REACTIONS (2)
  - Pericardial effusion [Not Recovered/Not Resolved]
  - Headache [Unknown]

NARRATIVE: CASE EVENT DATE: 20250701
